FAERS Safety Report 10342451 (Version 2)
Quarter: 2014Q3

REPORT INFORMATION
  Report Type: Spontaneous
  Country: US (occurrence: US)
  Receive Date: 20140725
  Receipt Date: 20140911
  Transmission Date: 20150326
  Serious: Yes (Hospitalization)
  Sender: FDA-Public Use
  Company Number: US-BAYER-2014-110233

PATIENT
  Age: 28 Year
  Sex: Female
  Weight: 68.93 kg

DRUGS (1)
  1. MIRENA [Suspect]
     Active Substance: LEVONORGESTREL
     Indication: CONTRACEPTION
     Dosage: 20 MCG/24HR, CONT
     Route: 015
     Dates: start: 20120718, end: 20131230

REACTIONS (7)
  - Device dislocation [None]
  - Discomfort [None]
  - General physical health deterioration [None]
  - Pain [None]
  - Device dislocation [None]
  - Procedural pain [None]
  - Injury [None]

NARRATIVE: CASE EVENT DATE: 20131202
